FAERS Safety Report 15373329 (Version 17)
Quarter: 2023Q1

REPORT INFORMATION
  Report Type: Spontaneous
  Country: US (occurrence: US)
  Receive Date: 20180912
  Receipt Date: 20230111
  Transmission Date: 20230417
  Serious: Yes (Hospitalization, Other)
  Sender: FDA-Public Use
  Company Number: US-BIOGEN-2018BI00630551

PATIENT
  Age: 58 Year
  Sex: Female

DRUGS (3)
  1. TYSABRI [Suspect]
     Active Substance: NATALIZUMAB
     Indication: Multiple sclerosis
     Dosage: INFUSED FOR OVER 1 HOUR
     Route: 050
     Dates: start: 2009
  2. TYSABRI [Suspect]
     Active Substance: NATALIZUMAB
     Dosage: INFUSED OVER 1 HOUR
     Route: 050
     Dates: start: 20130605, end: 20220922
  3. TALZENNA [Concomitant]
     Active Substance: TALAZOPARIB TOSYLATE
     Indication: Product used for unknown indication
     Route: 050

REACTIONS (5)
  - Neoplasm malignant [Not Recovered/Not Resolved]
  - Squamous cell carcinoma of the tongue [Recovered/Resolved]
  - Breast cancer metastatic [Not Recovered/Not Resolved]
  - Radiation necrosis [Unknown]
  - Tremor [Unknown]

NARRATIVE: CASE EVENT DATE: 20190401
